FAERS Safety Report 16639405 (Version 2)
Quarter: 2019Q3

REPORT INFORMATION
  Report Type: Report from Study
  Country: US (occurrence: US)
  Receive Date: 20190726
  Receipt Date: 20190911
  Transmission Date: 20191004
  Serious: Yes (Hospitalization)
  Sender: FDA-Public Use
  Company Number: US-TAKEDA-2019TUS044520

PATIENT
  Sex: Male

DRUGS (2)
  1. PONATINIB [Suspect]
     Active Substance: PONATINIB
     Indication: OROPHARYNGEAL CANCER
     Dosage: 45 MILLIGRAM, QD
     Route: 048
     Dates: start: 20190404
  2. PONATINIB [Suspect]
     Active Substance: PONATINIB
     Dosage: UNK, QD
     Route: 048
     Dates: start: 20190501, end: 20190801

REACTIONS (4)
  - Dizziness [Unknown]
  - Repetitive speech [Unknown]
  - Off label use [Unknown]
  - Amnesia [Unknown]
